FAERS Safety Report 9631799 (Version 1)
Quarter: 2013Q4

REPORT INFORMATION
  Report Type: Spontaneous
  Country: US (occurrence: US)
  Receive Date: 20131018
  Receipt Date: 20131018
  Transmission Date: 20140711
  Serious: No
  Sender: FDA-Public Use
  Company Number: US-BAYER-2013-126027

PATIENT
  Age: 74 Year
  Sex: Male
  Weight: 86 kg

DRUGS (1)
  1. ALEVE SMOOTH GELS [Suspect]
     Indication: JOINT SWELLING
     Dosage: UNK
     Route: 048

REACTIONS (2)
  - Off label use [None]
  - Expired drug administered [None]
